FAERS Safety Report 14827690 (Version 1)
Quarter: 2018Q2

REPORT INFORMATION
  Report Type: Spontaneous
  Country: US (occurrence: US)
  Receive Date: 20180430
  Receipt Date: 20180430
  Transmission Date: 20180711
  Serious: No
  Sender: FDA-Public Use
  Company Number: US-ABBVIE-18K-163-2266842-00

PATIENT
  Age: 65 Year
  Sex: Male

DRUGS (2)
  1. NORVASC [Concomitant]
     Active Substance: AMLODIPINE BESYLATE
     Indication: HYPERTENSION
  2. ANDROGEL [Suspect]
     Active Substance: TESTOSTERONE
     Indication: HYPOGONADISM
     Dosage: 4 PUMPS DAILY
     Route: 061

REACTIONS (11)
  - Pre-existing condition improved [Not Recovered/Not Resolved]
  - Drug administration error [Unknown]
  - Asthenia [Recovered/Resolved]
  - Therapeutic response unexpected [Not Recovered/Not Resolved]
  - Product storage error [Unknown]
  - Drug effect decreased [Recovered/Resolved]
  - Loss of libido [Recovered/Resolved]
  - Fatigue [Recovered/Resolved]
  - Mental impairment [Recovered/Resolved]
  - Seasonal allergy [Not Recovered/Not Resolved]
  - Decreased appetite [Not Recovered/Not Resolved]

NARRATIVE: CASE EVENT DATE: 201708
